FAERS Safety Report 19397324 (Version 2)
Quarter: 2021Q4

REPORT INFORMATION
  Report Type: Spontaneous
  Country: JP (occurrence: JP)
  Receive Date: 20210610
  Receipt Date: 20211229
  Transmission Date: 20220303
  Serious: Yes (Hospitalization)
  Sender: FDA-Public Use
  Company Number: JP-TAKEDA-2021TJP030393

PATIENT
  Age: 7 Decade

DRUGS (1)
  1. VECTIBIX [Suspect]
     Active Substance: PANITUMUMAB
     Indication: Colorectal cancer
     Dosage: UNK
     Route: 041
     Dates: start: 2021

REACTIONS (3)
  - Dermatitis [Unknown]
  - Dermatitis acneiform [Unknown]
  - Paronychia [Unknown]

NARRATIVE: CASE EVENT DATE: 20210401
